FAERS Safety Report 7526546-5 (Version None)
Quarter: 2011Q2

REPORT INFORMATION
  Report Type: 
  Country: None (occurrence: None)
  Receive Date: 20110606
  Receipt Date: 20110523
  Transmission Date: 20111010
  Serious: Yes (Other)
  Sender: FDA-Public Use
  Company Number: ES-JNJFOC-20110510726

PATIENT
  Age: 28 Year
  Sex: Female

DRUGS (2)
  1. REMICADE [Suspect]
     Indication: PSORIASIS
     Dosage: 5TH INFUSION; 22 WEEKS AFTER INITIATING THERAPY
     Route: 042
  2. REMICADE [Suspect]
     Route: 042

REACTIONS (1)
  - LYMPH NODE TUBERCULOSIS [None]
